FAERS Safety Report 14794568 (Version 1)
Quarter: 2018Q2

REPORT INFORMATION
  Report Type: Spontaneous
  Country: US (occurrence: US)
  Receive Date: 20180423
  Receipt Date: 20180423
  Transmission Date: 20180711
  Serious: Yes (Hospitalization, Other)
  Sender: FDA-Public Use
  Company Number: US-AMARIN PHARMA, INC.-2018AMR000084

PATIENT
  Age: 78 Year
  Sex: Male
  Weight: 50.39 kg

DRUGS (1)
  1. VASCEPA [Suspect]
     Active Substance: ICOSAPENT ETHYL
     Indication: PRODUCT USED FOR UNKNOWN INDICATION
     Route: 065
     Dates: start: 2016

REACTIONS (4)
  - Weight decreased [Unknown]
  - Chronic obstructive pulmonary disease [Unknown]
  - Colon cancer [Unknown]
  - Decreased appetite [Unknown]

NARRATIVE: CASE EVENT DATE: 201705
